FAERS Safety Report 24704090 (Version 2)
Quarter: 2024Q4

REPORT INFORMATION
  Report Type: Report from Study
  Country: CA (occurrence: CA)
  Receive Date: 20241206
  Receipt Date: 20241211
  Transmission Date: 20250115
  Serious: No
  Sender: ROCHE
  Company Number: CA-ROCHE-3558463

PATIENT
  Age: 32 Year
  Sex: Male

DRUGS (1)
  1. OCREVUS [Suspect]
     Active Substance: OCRELIZUMAB
     Indication: Primary progressive multiple sclerosis
     Dosage: 300 MG AT DAY 0 AND 14, THEN 600 MG EVERY 6 MONTHS
     Route: 042
     Dates: start: 20200924

REACTIONS (10)
  - Sinusitis [Not Recovered/Not Resolved]
  - Ear infection [Recovered/Resolved]
  - Migraine [Not Recovered/Not Resolved]
  - Haemorrhage [Recovered/Resolved]
  - Head injury [Recovered/Resolved]
  - Dry mouth [Unknown]
  - Headache [Unknown]
  - Oral herpes [Recovered/Resolved]
  - Gait disturbance [Not Recovered/Not Resolved]
  - Fall [Unknown]

NARRATIVE: CASE EVENT DATE: 20240501
